FAERS Safety Report 25141555 (Version 1)
Quarter: 2025Q2

REPORT INFORMATION
  Report Type: Spontaneous
  Country: US (occurrence: None)
  Receive Date: 20250331
  Receipt Date: 20250331
  Transmission Date: 20250716
  Serious: Yes (Disabling)
  Sender: FDA-CTU
  Company Number: None

PATIENT
  Age: 55 Year
  Sex: Male
  Weight: 78.75 kg

DRUGS (6)
  1. XOLAIR [Suspect]
     Active Substance: OMALIZUMAB
     Indication: Hereditary alpha tryptasaemia
     Route: 058
     Dates: start: 20230626, end: 20231001
  2. METHOTREXATE [Suspect]
     Active Substance: METHOTREXATE
  3. LORATADINE [Concomitant]
     Active Substance: LORATADINE
  4. PREDNISONE [Concomitant]
     Active Substance: PREDNISONE
  5. VITAMINS [Concomitant]
     Active Substance: VITAMINS
  6. ADRENAL SUPPORT [Concomitant]
     Active Substance: HOMEOPATHICS

REACTIONS (4)
  - Drug ineffective [None]
  - Angioedema [None]
  - Urticaria chronic [None]
  - Immune system disorder [None]

NARRATIVE: CASE EVENT DATE: 20230811
